FAERS Safety Report 5395032-3 (Version None)
Quarter: 2007Q3

REPORT INFORMATION
  Report Type: 
  Country: None (occurrence: None)
  Receive Date: 20070724
  Receipt Date: 20070619
  Transmission Date: 20080115
  Serious: Yes (Hospitalization)
  Sender: FDA-Public Use
  Company Number: FRWYE071523JUL07

PATIENT
  Age: 8 Year
  Sex: Male

DRUGS (1)
  1. ADVIL ENFANTS ET NOURRISSONS [Suspect]
     Dosage: INTAKE OF ONE DOSE
     Route: 048
     Dates: start: 20070616, end: 20070616

REACTIONS (6)
  - OEDEMA MUCOSAL [None]
  - OESOPHAGEAL PAIN [None]
  - ORAL DISCOMFORT [None]
  - PHARMACEUTICAL PRODUCT COMPLAINT [None]
  - THROAT IRRITATION [None]
  - TONGUE DISORDER [None]
